FAERS Safety Report 4527066-2 (Version None)
Quarter: 2004Q4

REPORT INFORMATION
  Report Type: 
  Country: None (occurrence: None)
  Receive Date: 20041213
  Receipt Date: 20041130
  Transmission Date: 20050328
  Serious: Yes (Hospitalization)
  Sender: FDA-Public Use
  Company Number: 2004100296

PATIENT
  Age: 49 Year
  Sex: Female

DRUGS (10)
  1. NORVASC [Suspect]
     Indication: ANGINA PECTORIS
     Dosage: 5 MG (5 MG, 1 IN 1 D), ORAL
     Route: 048
     Dates: start: 20040525, end: 20040618
  2. SORTIS (ATORVASTATIN) [Suspect]
     Indication: ANGINA PECTORIS
     Dosage: 10 MG (10 MG, 1 IN 1 D), ORAL
     Route: 048
     Dates: start: 20040525, end: 20040722
  3. CETIRIZINE HCL [Concomitant]
  4. TRANDOLARPIL (TRANSDOLAPRIL) [Concomitant]
  5. PREDNISOLONE [Concomitant]
  6. CLEMASTINE (CLEMASTINE) [Concomitant]
  7. ALL OTHER THERAPEUTIC PRODUCTS (ALL OTHER THERAPEUTIC PRODUCTS) [Concomitant]
  8. MONTELUKAST (MONTELUKAST) [Concomitant]
  9. DICLOFENAC SODIUM [Concomitant]
  10. EBASTINE [Concomitant]

REACTIONS (2)
  - ANGIONEUROTIC OEDEMA [None]
  - DRUG HYPERSENSITIVITY [None]
